FAERS Safety Report 15158451 (Version 2)
Quarter: 2020Q2

REPORT INFORMATION
  Report Type: Spontaneous
  Country: CA (occurrence: CA)
  Receive Date: 20180718
  Receipt Date: 20200528
  Transmission Date: 20200713
  Serious: Yes (Disabling)
  Sender: FDA-Public Use
  Company Number: CA-JNJFOC-20180715405

PATIENT
  Age: 4 Decade
  Sex: Female

DRUGS (2)
  1. REACTINE (CETIRIZINE DIHYDROCHLORIDE) [Suspect]
     Active Substance: CETIRIZINE HYDROCHLORIDE
     Indication: RHINITIS ALLERGIC
     Dosage: 1 TAB, OD, PO
     Route: 048
     Dates: start: 19980720, end: 19980726
  2. MARVELON [Concomitant]
     Active Substance: DESOGESTREL\ETHINYL ESTRADIOL
     Indication: CONTRACEPTION
     Dosage: OD PO
     Route: 048
     Dates: start: 199805

REACTIONS (5)
  - Insomnia [Recovering/Resolving]
  - Paranoia [Recovering/Resolving]
  - Panic reaction [Recovering/Resolving]
  - Hot flush [Recovered/Resolved]
  - Anxiety [Recovering/Resolving]

NARRATIVE: CASE EVENT DATE: 19980722
